FAERS Safety Report 13205033 (Version 1)
Quarter: 2017Q1

REPORT INFORMATION
  Report Type: Spontaneous
  Country: BR (occurrence: BR)
  Receive Date: 20170209
  Receipt Date: 20170209
  Transmission Date: 20170428
  Serious: Yes (Other)
  Sender: FDA-Public Use
  Company Number: BR-PFIZER INC-2017058660

PATIENT
  Age: 51 Year
  Sex: Female
  Weight: 78 kg

DRUGS (2)
  1. VENLIFT [Concomitant]
     Active Substance: VENLAFAXINE HYDROCHLORIDE
     Indication: DEPRESSION
     Dosage: 1 OF 150 MG AND 1 75 MG PER DAY
     Route: 048
     Dates: start: 20050206
  2. PREGABALIN. [Suspect]
     Active Substance: PREGABALIN
     Indication: FIBROMYALGIA
     Dosage: 1 OF 150 MG AND 1 OF 75 MG
     Route: 048
     Dates: start: 20070506

REACTIONS (2)
  - Intervertebral disc protrusion [Unknown]
  - Spinal pain [Not Recovered/Not Resolved]
